FAERS Safety Report 8309105-6 (Version None)
Quarter: 2012Q2

REPORT INFORMATION
  Report Type: 
  Country: None (occurrence: None)
  Receive Date: 20120424
  Receipt Date: 20120419
  Transmission Date: 20120825
  Serious: Yes (Hospitalization)
  Sender: FDA-Public Use
  Company Number: NO-PFIZER INC-2012097869

PATIENT
  Age: 60 Year
  Sex: Male

DRUGS (6)
  1. SIMVASTATIN [Concomitant]
     Dosage: 20 MG
  2. ZOLOFT [Suspect]
     Indication: ANXIETY
  3. SUTENT [Concomitant]
     Dosage: 50 MG
  4. LANSOPRAZOLE [Concomitant]
     Dosage: 50 MG
  5. AMLODIPINE [Concomitant]
     Dosage: 10 MG
  6. IRBESARTAN [Concomitant]
     Dosage: 75 MG

REACTIONS (2)
  - HYPOAESTHESIA [None]
  - APHASIA [None]
